FAERS Safety Report 18499345 (Version 2)
Quarter: 2020Q4

REPORT INFORMATION
  Report Type: Spontaneous
  Country: US (occurrence: US)
  Receive Date: 20201113
  Receipt Date: 20201118
  Transmission Date: 20210114
  Serious: Yes (Other)
  Sender: FDA-Public Use
  Company Number: US-BAUSCH-BL-2020-029358

PATIENT
  Age: 74 Year
  Sex: Female
  Weight: 56.75 kg

DRUGS (2)
  1. MURO 128 [Suspect]
     Active Substance: SODIUM CHLORIDE
     Indication: POSTOPERATIVE CARE
     Route: 047
     Dates: start: 202008, end: 2020
  2. MURO 128 [Suspect]
     Active Substance: SODIUM CHLORIDE
     Indication: POSTOPERATIVE CARE
     Dosage: AT NIGHT
     Route: 047
     Dates: start: 202008, end: 2020

REACTIONS (6)
  - Product packaging quantity issue [Unknown]
  - Glaucoma surgery [Unknown]
  - Product supply issue [Unknown]
  - Visual impairment [Unknown]
  - Product quality issue [Unknown]
  - Therapy interrupted [Unknown]

NARRATIVE: CASE EVENT DATE: 2020
